FAERS Safety Report 16969004 (Version 2)
Quarter: 2020Q2

REPORT INFORMATION
  Report Type: Report from Study
  Country: JP (occurrence: JP)
  Receive Date: 20191029
  Receipt Date: 20200410
  Transmission Date: 20200713
  Serious: Yes (Other)
  Sender: FDA-Public Use
  Company Number: JP-ROCHE-2294474

PATIENT
  Age: 75 Year
  Sex: Male
  Weight: 66 kg

DRUGS (2)
  1. OBINUTUZUMAB. [Suspect]
     Active Substance: OBINUTUZUMAB
     Indication: B-CELL LYMPHOMA
     Dosage: DOSE INTERVAL UNCERTAINTY
     Route: 041
     Dates: start: 20190315
  2. BENDAMUSTINE HYDROCHLORIDE. [Concomitant]
     Active Substance: BENDAMUSTINE HYDROCHLORIDE
     Indication: B-CELL LYMPHOMA
     Dosage: DOSAGE IS UNCERTAIN.
     Route: 041
     Dates: start: 20190312, end: 20190625

REACTIONS (3)
  - Bone marrow failure [Recovered/Resolved]
  - Bone marrow failure [Unknown]
  - Nausea [Recovered/Resolved]

NARRATIVE: CASE EVENT DATE: 20190315
